FAERS Safety Report 11239566 (Version 1)
Quarter: 2015Q3

REPORT INFORMATION
  Report Type: Spontaneous
  Country: US (occurrence: US)
  Receive Date: 20150706
  Receipt Date: 20150706
  Transmission Date: 20151125
  Serious: Yes (Other)
  Sender: FDA-Public Use
  Company Number: US-CIPLA LTD.-2015US05290

PATIENT

DRUGS (4)
  1. AMLODIPINE [Suspect]
     Active Substance: AMLODIPINE BESYLATE
     Indication: HYPERTENSION
     Dosage: UNK
     Route: 065
  2. HYDRALAZINE [Suspect]
     Active Substance: HYDRALAZINE HYDROCHLORIDE
     Indication: HYPERTENSION
     Dosage: UNK
     Route: 065
  3. IRBESARTAN. [Suspect]
     Active Substance: IRBESARTAN
     Indication: HYPERTENSION
     Dosage: UNK
     Route: 065
  4. METOPROLOL [Suspect]
     Active Substance: METOPROLOL
     Indication: HYPERTENSION
     Dosage: UNK
     Route: 065

REACTIONS (13)
  - Cardiac murmur [Unknown]
  - Left ventricular hypertrophy [Unknown]
  - Gene mutation [Unknown]
  - 17-alpha-hydroxylase deficiency [Unknown]
  - Blood potassium decreased [Recovered/Resolved]
  - Blood cortisol decreased [Unknown]
  - Dehydroepiandrosterone decreased [Unknown]
  - Exercise tolerance decreased [Unknown]
  - Blood corticosterone increased [Unknown]
  - Orthostatic intolerance [Unknown]
  - Renin decreased [Recovered/Resolved]
  - Drug ineffective [Unknown]
  - Skin hyperpigmentation [Unknown]
